FAERS Safety Report 4845212-8 (Version None)
Quarter: 2005Q4

REPORT INFORMATION
  Report Type: 
  Country: None (occurrence: None)
  Receive Date: 20051125
  Receipt Date: 20051116
  Transmission Date: 20060501
  Serious: Yes (Other)
  Sender: FDA-Public Use
  Company Number: 2005124059

PATIENT
  Age: 63 Year
  Sex: Female
  Weight: 82.5547 kg

DRUGS (11)
  1. NEURONTIN [Suspect]
     Indication: DIABETIC NEUROPATHY
     Dosage: 600 MG (300 MG, 2 IN 1 D), ORAL
     Route: 048
     Dates: start: 20050101
  2. INSULIN NOVOLIN 70/30 (INSULIN HUMAN SEMISYNTHETIC, INSULIN ISOPHANE H [Concomitant]
  3. PREVACID [Concomitant]
  4. DIOVAN ^NOVARTIS^ (VALSARTAN) [Concomitant]
  5. ANTIHYPERTENSIVES (ANTIHYPERTENSIVES) [Concomitant]
  6. MAGNESIUM (MAGNESIUM) [Concomitant]
  7. XANAX [Concomitant]
  8. PLAVIX [Concomitant]
  9. HYDRALAZINE HCL [Concomitant]
  10. COREG [Concomitant]
  11. HYOSCYAMINE (HYOSCYAMINE) [Concomitant]

REACTIONS (6)
  - BLOOD GLUCOSE INCREASED [None]
  - CONDITION AGGRAVATED [None]
  - DIABETIC NEUROPATHY [None]
  - DIFFICULTY IN WALKING [None]
  - DYSPNOEA [None]
  - VISION BLURRED [None]
